FAERS Safety Report 7152995-3 (Version None)
Quarter: 2010Q4

REPORT INFORMATION
  Report Type: 
  Country: None (occurrence: None)
  Receive Date: 20101130
  Receipt Date: 20101122
  Transmission Date: 20110411
  Serious: Yes (Hospitalization)
  Sender: FDA-Public Use
  Company Number: DKLU1066682

PATIENT
  Age: 20 Year
  Sex: Female

DRUGS (5)
  1. SABRIL [Suspect]
     Indication: COMPLEX PARTIAL SEIZURES
     Dosage: 1000 MG MILLIGRAM(S), 1 IN 1 D, ORAL; 500 MG MILLIGRAM(S), 1 IN 1 D, ORAL
     Route: 048
     Dates: start: 20100901, end: 20101114
  2. RAPAMUNE [Concomitant]
  3. AMITRIPTYLINE HYDROCHLORIDE [Concomitant]
  4. FOLIC ACID [Concomitant]
  5. VIMPAT [Concomitant]

REACTIONS (1)
  - GRAND MAL CONVULSION [None]
